FAERS Safety Report 7056177-5 (Version None)
Quarter: 2010Q4

REPORT INFORMATION
  Report Type: 
  Country: None (occurrence: None)
  Receive Date: 20101018
  Receipt Date: 20101001
  Transmission Date: 20110411
  Serious: No
  Sender: FDA-Public Use
  Company Number: 2010-00857

PATIENT
  Sex: Female

DRUGS (1)
  1. ZICAM COLD REMEDY ORAL MIST [Suspect]

REACTIONS (1)
  - AGEUSIA [None]
